FAERS Safety Report 14778426 (Version 1)
Quarter: 2018Q2

REPORT INFORMATION
  Report Type: Spontaneous
  Country: GB (occurrence: GB)
  Receive Date: 20180419
  Receipt Date: 20180419
  Transmission Date: 20180711
  Serious: Yes (Disabling, Other)
  Sender: FDA-Public Use
  Company Number: GB-009507513-1804GBR005998

PATIENT
  Age: 46 Year
  Sex: Female
  Weight: 66.67 kg

DRUGS (2)
  1. MIRTAZAPINE. [Suspect]
     Active Substance: MIRTAZAPINE
     Indication: DEPRESSION
     Dosage: UNK
     Route: 048
     Dates: start: 1996, end: 201601
  2. VENLAFAXINE HYDROCHLORIDE. [Suspect]
     Active Substance: VENLAFAXINE HYDROCHLORIDE
     Indication: DEPRESSION
     Dosage: UNK
     Route: 048
     Dates: start: 1996, end: 201601

REACTIONS (17)
  - Abdominal discomfort [Not Recovered/Not Resolved]
  - Agitation [Unknown]
  - Nasopharyngitis [Not Recovered/Not Resolved]
  - Paraesthesia [Not Recovered/Not Resolved]
  - Paraesthesia [Unknown]
  - Disorientation [Unknown]
  - Folate deficiency [Unknown]
  - Asthenia [Unknown]
  - Drug withdrawal syndrome [Not Recovered/Not Resolved]
  - Influenza [Not Recovered/Not Resolved]
  - Confusional state [Unknown]
  - Tinnitus [Recovered/Resolved]
  - Nausea [Not Recovered/Not Resolved]
  - Vitamin D deficiency [Unknown]
  - Malaise [Unknown]
  - Dizziness [Unknown]
  - Fatigue [Not Recovered/Not Resolved]

NARRATIVE: CASE EVENT DATE: 201601
